FAERS Safety Report 6472235-8 (Version None)
Quarter: 2009Q4

REPORT INFORMATION
  Report Type: 
  Country: None (occurrence: None)
  Receive Date: 20091203
  Receipt Date: 20091125
  Transmission Date: 20100525
  Serious: Yes (Death)
  Sender: FDA-Public Use
  Company Number: US-GILEAD-2009-0025420

PATIENT
  Sex: Male

DRUGS (16)
  1. LETAIRIS [Suspect]
     Indication: PULMONARY ARTERIAL HYPERTENSION
     Route: 048
     Dates: start: 20090313, end: 20091017
  2. CARVEDILOL [Concomitant]
     Dates: start: 20090114
  3. DIGOXIN [Concomitant]
     Dates: start: 20090114
  4. AVAPRO [Concomitant]
     Dates: start: 20090114
  5. LIPITOR [Concomitant]
     Dates: start: 20090113
  6. PLAVIX [Concomitant]
     Dates: start: 20090114
  7. HYDROCHLOROTHIAZIDE [Concomitant]
     Dates: start: 20090114
  8. ISOSORBIDE [Concomitant]
  9. LASIX [Concomitant]
  10. SPIRIVA [Concomitant]
     Dates: start: 20090114
  11. IMURAN [Concomitant]
     Dates: start: 20090114
  12. JANUVIA [Concomitant]
     Dates: start: 20090114
  13. HUMULIN N [Concomitant]
  14. GLIMEPIRIDE [Concomitant]
     Dates: start: 20090114
  15. LIDODERM [Concomitant]
     Dates: start: 20091006, end: 20091006
  16. OMEPRAZOLE [Concomitant]
     Dates: start: 20090113

REACTIONS (1)
  - DEATH [None]
